FAERS Safety Report 12170773 (Version 1)
Quarter: 2016Q1

REPORT INFORMATION
  Report Type: Spontaneous
  Country: US (occurrence: None)
  Receive Date: 20160310
  Receipt Date: 20160310
  Transmission Date: 20160526
  Serious: No
  Sender: FDA-Public Use
  Company Number: None

PATIENT
  Age: 61 Year
  Sex: Female

DRUGS (5)
  1. HUMIRA [Suspect]
     Active Substance: ADALIMUMAB
  2. LEVOTHYROXINE. [Suspect]
     Active Substance: LEVOTHYROXINE
  3. CLONAZEPAM. [Suspect]
     Active Substance: CLONAZEPAM
  4. TRAMADOL. [Suspect]
     Active Substance: TRAMADOL
  5. PANTOPRAZOLE [Suspect]
     Active Substance: PANTOPRAZOLE SODIUM

REACTIONS (4)
  - Depressed mood [None]
  - Ocular hyperaemia [None]
  - Anxiety [None]
  - Suicidal ideation [None]
